FAERS Safety Report 23148303 (Version 1)
Quarter: 2023Q4

REPORT INFORMATION
  Report Type: Spontaneous
  Country: DE (occurrence: DE)
  Receive Date: 20231106
  Receipt Date: 20231106
  Transmission Date: 20240109
  Serious: Yes (Death)
  Sender: FDA-Public Use
  Company Number: DE-PFIZER INC-202300237226

PATIENT
  Age: 66 Year
  Sex: Male

DRUGS (21)
  1. BICNU [Suspect]
     Active Substance: CARMUSTINE
     Indication: Angioimmunoblastic T-cell lymphoma
     Dosage: BEAM, HD CHEMOTHERAPY
     Route: 065
  2. CARBOPLATIN [Suspect]
     Active Substance: CARBOPLATIN
     Indication: Angioimmunoblastic T-cell lymphoma
     Dosage: DHAC, 1 COURSE
     Route: 065
  3. CISPLATIN [Suspect]
     Active Substance: CISPLATIN
     Indication: Angioimmunoblastic T-cell lymphoma
     Dosage: DHAP, 1 COURSE
     Route: 065
  4. CYCLOPHOSPHAMIDE [Suspect]
     Active Substance: CYCLOPHOSPHAMIDE
     Indication: Angioimmunoblastic T-cell lymphoma
     Dosage: CHOP, 5 COURSES
     Route: 065
  5. CYTARABINE [Suspect]
     Active Substance: CYTARABINE
     Dosage: BEAM, HD CHEMOTHERAPY
     Route: 065
  6. CYTARABINE [Suspect]
     Active Substance: CYTARABINE
     Indication: Angioimmunoblastic T-cell lymphoma
     Dosage: DHAC, 1 COURSE
     Route: 065
  7. CYTARABINE [Suspect]
     Active Substance: CYTARABINE
     Dosage: DHAP, 1 COURSE
     Route: 065
  8. DEXAMETHASONE [Suspect]
     Active Substance: DEXAMETHASONE
     Dosage: DHAC, 1 COURSE
     Route: 065
  9. DEXAMETHASONE [Suspect]
     Active Substance: DEXAMETHASONE
     Indication: Angioimmunoblastic T-cell lymphoma
     Dosage: DHAP, 1 COURSE
     Route: 065
  10. DOXORUBICIN HYDROCHLORIDE [Suspect]
     Active Substance: DOXORUBICIN HYDROCHLORIDE
     Indication: Angioimmunoblastic T-cell lymphoma
     Dosage: CHOP, 5 COURSES
     Route: 065
  11. ETOPOSIDE [Suspect]
     Active Substance: ETOPOSIDE
     Indication: Angioimmunoblastic T-cell lymphoma
     Dosage: TEPIP, ONCE DAILY ON DAYS 1-7 EVERY 28 DAYS, 24 CYCLES
     Route: 048
  12. ETOPOSIDE [Suspect]
     Active Substance: ETOPOSIDE
     Dosage: BEAM, HD CHEMOTHERAPY
     Route: 065
  13. GEMCITABINE HYDROCHLORIDE [Suspect]
     Active Substance: GEMCITABINE HYDROCHLORIDE
     Indication: Angioimmunoblastic T-cell lymphoma
     Dosage: 2 COURSES
     Route: 065
  14. IDARUBICIN HYDROCHLORIDE [Suspect]
     Active Substance: IDARUBICIN HYDROCHLORIDE
     Indication: Angioimmunoblastic T-cell lymphoma
     Dosage: TEPIP, ONCE DAILY ON DAYS 5-7 EVERY 28 DAYS, 24 CYCLES
     Route: 048
  15. MELPHALAN [Suspect]
     Active Substance: MELPHALAN
     Indication: Angioimmunoblastic T-cell lymphoma
     Dosage: BEAM, HD CHEMOTHERAPY
     Route: 065
  16. OXALIPLATIN [Suspect]
     Active Substance: OXALIPLATIN
     Indication: Angioimmunoblastic T-cell lymphoma
     Dosage: 2 COURSES
     Route: 065
  17. PREDNISOLONE [Suspect]
     Active Substance: PREDNISOLONE
     Indication: Angioimmunoblastic T-cell lymphoma
     Dosage: TEPIP, ONCE DAILY ON DAYS 1-7 EVERY 28 DAYS, 24 CYCLES
     Route: 048
  18. PREDNISOLONE [Suspect]
     Active Substance: PREDNISOLONE
     Dosage: CHOP, 5 COURSES
     Route: 065
  19. PROCARBAZINE [Suspect]
     Active Substance: PROCARBAZINE
     Indication: Angioimmunoblastic T-cell lymphoma
     Dosage: TEPIP, ONCE DAILY ON DAYS 1-7 EVERY 28 DAYS, 24 CYCLES
     Route: 048
  20. TROFOSFAMIDE [Suspect]
     Active Substance: TROFOSFAMIDE
     Indication: Angioimmunoblastic T-cell lymphoma
     Dosage: TEPIP, 3 TIMES PER DAY ON DAYS 1-7 EVERY 28 DAYS, 24 CYCLES
     Route: 048
  21. VINCRISTINE [Suspect]
     Active Substance: VINCRISTINE
     Indication: Angioimmunoblastic T-cell lymphoma
     Dosage: CHOP, 5 COURSES
     Route: 065

REACTIONS (3)
  - Second primary malignancy [Fatal]
  - Acute myeloid leukaemia [Fatal]
  - Myelodysplastic syndrome [Fatal]
